FAERS Safety Report 24771842 (Version 1)
Quarter: 2024Q4

REPORT INFORMATION
  Report Type: Spontaneous
  Country: JP (occurrence: JP)
  Receive Date: 20241224
  Receipt Date: 20241224
  Transmission Date: 20250114
  Serious: Yes (Hospitalization)
  Sender: ALEXION PHARMACEUTICALS
  Company Number: JP-ASTRAZENECA-240143141_063010_P_1

PATIENT
  Age: 10 Decade
  Weight: 40 kg

DRUGS (24)
  1. DAPAGLIFLOZIN [Suspect]
     Active Substance: DAPAGLIFLOZIN
     Indication: Cardiac failure chronic
     Dosage: AFTER BREAKFAST
  2. DAPAGLIFLOZIN [Suspect]
     Active Substance: DAPAGLIFLOZIN
     Dosage: AFTER BREAKFAST
     Route: 048
  3. DAPAGLIFLOZIN [Suspect]
     Active Substance: DAPAGLIFLOZIN
     Dosage: AFTER BREAKFAST
  4. DAPAGLIFLOZIN [Suspect]
     Active Substance: DAPAGLIFLOZIN
     Dosage: AFTER BREAKFAST
     Route: 048
  5. LEVOTHYROXINE SODIUM [Concomitant]
     Active Substance: LEVOTHYROXINE SODIUM
     Dosage: AFTER BREAKFAST
     Route: 048
  6. LEVOTHYROXINE SODIUM [Concomitant]
     Active Substance: LEVOTHYROXINE SODIUM
     Dosage: AFTER BREAKFAST
  7. AZOSEMIDE [Concomitant]
     Active Substance: AZOSEMIDE
     Dosage: AFTER BREAKFAST
     Route: 048
  8. AZOSEMIDE [Concomitant]
     Active Substance: AZOSEMIDE
     Dosage: AFTER BREAKFAST
  9. NICORANDIL [Concomitant]
     Active Substance: NICORANDIL
     Dosage: AFTER EACH MEAL
     Route: 048
  10. NICORANDIL [Concomitant]
     Active Substance: NICORANDIL
     Dosage: AFTER EACH MEAL
  11. SODIUM FERROUS CITRATE [Concomitant]
     Active Substance: SODIUM FERROUS CITRATE
     Dosage: AFTER EVENING MEAL
     Route: 048
  12. SODIUM FERROUS CITRATE [Concomitant]
     Active Substance: SODIUM FERROUS CITRATE
     Dosage: AFTER EVENING MEAL
  13. MAGNESIUM OXIDE [Concomitant]
     Active Substance: MAGNESIUM OXIDE
     Dosage: AFTER EACH MEAL
     Route: 048
  14. MAGNESIUM OXIDE [Concomitant]
     Active Substance: MAGNESIUM OXIDE
     Dosage: AFTER EACH MEAL
  15. NIFEDIPINE [Concomitant]
     Active Substance: NIFEDIPINE
     Dosage: AFTER BREAKFAST AND EVENING MEAL
     Route: 048
  16. NIFEDIPINE [Concomitant]
     Active Substance: NIFEDIPINE
     Dosage: AFTER BREAKFAST AND EVENING MEAL
  17. CANDESARTAN [Concomitant]
     Active Substance: CANDESARTAN
     Dosage: AFTER BREAKFAST
     Route: 048
  18. CANDESARTAN [Concomitant]
     Active Substance: CANDESARTAN
     Dosage: AFTER BREAKFAST
  19. TIZANIDINE [Concomitant]
     Active Substance: TIZANIDINE
     Dosage: AFTER EACH MEAL
     Route: 048
  20. TIZANIDINE [Concomitant]
     Active Substance: TIZANIDINE
     Dosage: AFTER EACH MEAL
  21. RALOXIFENE HYDROCHLORIDE [Concomitant]
     Active Substance: RALOXIFENE HYDROCHLORIDE
     Dosage: AFTER BREAKFAST
     Route: 048
  22. RALOXIFENE HYDROCHLORIDE [Concomitant]
     Active Substance: RALOXIFENE HYDROCHLORIDE
     Dosage: AFTER BREAKFAST
  23. CELECOXIB [Concomitant]
     Active Substance: CELECOXIB
     Dosage: AFTER BREAKFAST AND EVENING MEAL
     Route: 048
  24. CELECOXIB [Concomitant]
     Active Substance: CELECOXIB
     Dosage: AFTER BREAKFAST AND EVENING MEAL

REACTIONS (3)
  - Fall [Unknown]
  - General physical health deterioration [Unknown]
  - Dehydration [Unknown]
